FAERS Safety Report 7391883-4 (Version None)
Quarter: 2011Q2

REPORT INFORMATION
  Report Type: 
  Country: None (occurrence: None)
  Receive Date: 20110404
  Receipt Date: 20110325
  Transmission Date: 20111010
  Serious: Yes (Death)
  Sender: FDA-Public Use
  Company Number: US-GENZYME-FLUD-1000949

PATIENT
  Age: 60 Year

DRUGS (8)
  1. MELPHALAN [Suspect]
     Indication: MYELOFIBROSIS
  2. CYCLOSPORINE [Concomitant]
     Indication: PROPHYLAXIS AGAINST GRAFT VERSUS HOST DISEASE
     Route: 065
  3. MYCOPHENOLATE MOFETIL [Concomitant]
     Indication: PROPHYLAXIS AGAINST GRAFT VERSUS HOST DISEASE
     Route: 065
  4. ATGAM [Suspect]
     Indication: STEM CELL TRANSPLANT
     Dosage: 4 X 10 MG/KG
     Route: 065
  5. ATGAM [Suspect]
     Indication: MYELOFIBROSIS
  6. MELPHALAN [Suspect]
     Indication: STEM CELL TRANSPLANT
     Dosage: 70 MG/M2 X 2
     Route: 065
  7. FLUDARA [Suspect]
     Indication: STEM CELL TRANSPLANT
     Dosage: 5 X 15 MG/M2
     Route: 065
  8. FLUDARA [Suspect]
     Indication: MYELOFIBROSIS

REACTIONS (1)
  - ANEURYSM [None]
